FAERS Safety Report 26061540 (Version 1)
Quarter: 2025Q4

REPORT INFORMATION
  Report Type: Spontaneous
  Country: PS (occurrence: PS)
  Receive Date: 20251118
  Receipt Date: 20251118
  Transmission Date: 20260117
  Serious: Yes (Other)
  Sender: JOHNSON AND JOHNSON
  Company Number: PS-JNJFOC-20250440205

PATIENT

DRUGS (1)
  1. CONCERTA [Suspect]
     Active Substance: METHYLPHENIDATE HYDROCHLORIDE
     Indication: Product used for unknown indication
     Dosage: 3IE688: EXPIRY: 30-JUN-2026; 24NG432X: EXPIRY: 31-JUL-2027
     Route: 065

REACTIONS (7)
  - Mallory-Weiss syndrome [Unknown]
  - Suspected counterfeit product [Unknown]
  - Drug ineffective [Unknown]
  - Adverse event [Unknown]
  - Product label issue [Unknown]
  - Somnolence [Unknown]
  - Tachycardia [Unknown]
